FAERS Safety Report 7124498-3 (Version None)
Quarter: 2010Q4

REPORT INFORMATION
  Report Type: 
  Country: None (occurrence: None)
  Receive Date: 20101128
  Receipt Date: 20101124
  Transmission Date: 20110411
  Serious: Yes (Hospitalization, Other)
  Sender: FDA-Public Use
  Company Number: AU-AMGEN-KDL412094

PATIENT

DRUGS (10)
  1. NEULASTA [Suspect]
     Indication: CHEMOTHERAPY
     Dosage: 6 MG, QCYCLE
     Route: 058
     Dates: start: 20090210
  2. GLICLAZIDE [Concomitant]
  3. CYCLOPHOSPHAMIDE [Concomitant]
     Dosage: UNK UNK, UNK
     Dates: start: 20090209
  4. DOXORUBICIN HCL [Concomitant]
     Dosage: UNK UNK, UNK
     Dates: start: 20090209
  5. VINCRISTINE SULFATE [Concomitant]
     Dosage: UNK UNK, UNK
     Dates: start: 20090209
  6. PREDNISONE [Concomitant]
     Dosage: UNK UNK, UNK
     Dates: start: 20090209
  7. RITUXIMAB [Concomitant]
     Dosage: UNK UNK, UNK
     Dates: start: 20090209
  8. ATORVASTATIN CALCIUM [Concomitant]
  9. DEXAMETHASONE [Concomitant]
     Dosage: 100 MG, UNK
     Dates: start: 20090209, end: 20090213
  10. PARACETAMOL [Concomitant]

REACTIONS (6)
  - ANXIETY [None]
  - BACK PAIN [None]
  - INSOMNIA [None]
  - PAIN [None]
  - PANIC ATTACK [None]
  - PSYCHOTIC DISORDER [None]
